FAERS Safety Report 9365804 (Version 1)
Quarter: 2013Q2

REPORT INFORMATION
  Report Type: Report from Study
  Country: AU (occurrence: AU)
  Receive Date: 20130625
  Receipt Date: 20130625
  Transmission Date: 20140414
  Serious: Yes (Other)
  Sender: FDA-Public Use
  Company Number: AU-ROCHE-GNE322483

PATIENT
  Age: 87 Year
  Sex: Female

DRUGS (2)
  1. LUCENTIS [Suspect]
     Indication: AGE-RELATED MACULAR DEGENERATION
     Route: 050
     Dates: start: 200708
  2. LUCENTIS [Suspect]
     Route: 050
     Dates: start: 201010

REACTIONS (7)
  - Retinal scar [Unknown]
  - Retinal detachment [Unknown]
  - Eye infection [Unknown]
  - Blindness [Unknown]
  - Vitreous floaters [Unknown]
  - Visual acuity reduced [Unknown]
  - Deafness [Unknown]
